FAERS Safety Report 15168260 (Version 1)
Quarter: 2018Q3

REPORT INFORMATION
  Report Type: Spontaneous
  Country: US (occurrence: US)
  Receive Date: 20180719
  Receipt Date: 20180719
  Transmission Date: 20181010
  Serious: No
  Sender: FDA-Public Use
  Company Number: US-BIOGEN-2018BI00600638

PATIENT
  Sex: Female

DRUGS (1)
  1. TECFIDERA [Suspect]
     Active Substance: DIMETHYL FUMARATE
     Indication: MULTIPLE SCLEROSIS
     Dosage: MAINTENANCE DOSE
     Route: 048
     Dates: start: 20170310, end: 20170623

REACTIONS (4)
  - Alanine aminotransferase increased [Unknown]
  - Memory impairment [Not Recovered/Not Resolved]
  - Laboratory test abnormal [Recovered/Resolved]
  - White blood cell count decreased [Unknown]
